FAERS Safety Report 8606051-5 (Version None)
Quarter: 2012Q3

REPORT INFORMATION
  Report Type: 
  Country: None (occurrence: None)
  Receive Date: 20120820
  Receipt Date: 20120810
  Transmission Date: 20120928
  Serious: Yes (Hospitalization, Other)
  Sender: FDA-Public Use
  Company Number: FR-ABBOTT-12P-056-0967300-00

PATIENT
  Sex: Female

DRUGS (4)
  1. ISENTRESS [Concomitant]
     Indication: HIV INFECTION
  2. TRUVADA [Concomitant]
     Indication: HIV INFECTION
  3. KALETRA [Suspect]
     Indication: HIV INFECTION
     Route: 048
     Dates: start: 20120319, end: 20120524
  4. COMBIVIR [Suspect]
     Indication: HIV INFECTION
     Route: 048
     Dates: start: 20120319, end: 20120524

REACTIONS (3)
  - CHOLESTASIS OF PREGNANCY [None]
  - GESTATIONAL DIABETES [None]
  - ADVERSE REACTION [None]
